FAERS Safety Report 7626578-2 (Version None)
Quarter: 2011Q3

REPORT INFORMATION
  Report Type: 
  Country: None (occurrence: None)
  Receive Date: 20110721
  Receipt Date: 20110711
  Transmission Date: 20111222
  Serious: Yes (Hospitalization)
  Sender: FDA-Public Use
  Company Number: FR-GLAXOSMITHKLINE-B0732030A

PATIENT
  Sex: Female

DRUGS (6)
  1. KIDROLASE [Suspect]
     Indication: PRODUCT USED FOR UNKNOWN INDICATION
     Dosage: 7INJ CUMULATIVE DOSE
     Route: 042
     Dates: start: 20110513, end: 20110602
  2. LUTERAN [Concomitant]
     Route: 048
  3. PENTACARINAT [Suspect]
     Indication: PRODUCT USED FOR UNKNOWN INDICATION
     Dosage: 1UNIT MONTHLY
     Route: 065
     Dates: start: 20110601
  4. VALACYCLOVIR HYDROCHLORIDE [Suspect]
     Indication: PRODUCT USED FOR UNKNOWN INDICATION
     Dosage: 500MG TWICE PER DAY
     Route: 048
     Dates: start: 20110601, end: 20110603
  5. FIBRINOGEN [Suspect]
     Indication: PRODUCT USED FOR UNKNOWN INDICATION
     Route: 042
     Dates: start: 20110526, end: 20110526
  6. ACLOTIN [Suspect]
     Indication: PRODUCT USED FOR UNKNOWN INDICATION
     Route: 042
     Dates: start: 20110602, end: 20110602

REACTIONS (5)
  - CEREBRAL VENOUS THROMBOSIS [None]
  - HEMIPARESIS [None]
  - EYE DISORDER [None]
  - CONVULSION [None]
  - DISORIENTATION [None]
